FAERS Safety Report 7169733-0 (Version None)
Quarter: 2010Q4

REPORT INFORMATION
  Report Type: 
  Country: None (occurrence: None)
  Receive Date: 20101217
  Receipt Date: 20101213
  Transmission Date: 20110411
  Serious: Yes (Death)
  Sender: FDA-Public Use
  Company Number: US-TEVA-256240USA

PATIENT
  Sex: Male

DRUGS (3)
  1. CLOZAPINE [Suspect]
     Indication: SCHIZOPHRENIA
     Route: 048
  2. CLONAZEPAM [Suspect]
  3. CITALOPRAM HYDROBROMIDE [Concomitant]

REACTIONS (2)
  - DEATH [None]
  - SLEEP APNOEA SYNDROME [None]
